FAERS Safety Report 18768071 (Version 2)
Quarter: 2022Q1

REPORT INFORMATION
  Report Type: Spontaneous
  Country: US (occurrence: US)
  Receive Date: 20210121
  Receipt Date: 20220111
  Transmission Date: 20220423
  Serious: No
  Sender: FDA-Public Use
  Company Number: US-SUN PHARMACEUTICAL INDUSTRIES LTD-2020R1-269044

PATIENT
  Sex: Male

DRUGS (2)
  1. LEVULAN KERASTICK [Suspect]
     Active Substance: AMINOLEVULINIC ACID HYDROCHLORIDE
     Indication: Skin disorder
     Dosage: UNK
     Route: 065
  2. LEVULAN KERASTICK [Suspect]
     Active Substance: AMINOLEVULINIC ACID HYDROCHLORIDE
     Dosage: ONE MORE TREATMENT
     Route: 065

REACTIONS (2)
  - Incorrect product administration duration [Unknown]
  - Skin burning sensation [Not Recovered/Not Resolved]
